FAERS Safety Report 11773093 (Version 1)
Quarter: 2015Q4

REPORT INFORMATION
  Report Type: Other
  Country: CA (occurrence: CA)
  Receive Date: 20151124
  Receipt Date: 20151124
  Transmission Date: 20160304
  Serious: Yes (Hospitalization)
  Sender: FDA-Public Use
  Company Number: CA-APOTEX-2015AP014465

PATIENT
  Age: 8 Year
  Sex: Female

DRUGS (2)
  1. APO CIMETIDINE [Suspect]
     Active Substance: CIMETIDINE
     Indication: SKIN PAPILLOMA
     Dosage: 150 MG, BID
     Route: 065
  2. CLARITIN [Concomitant]
     Active Substance: LORATADINE
     Indication: PRODUCT USED FOR UNKNOWN INDICATION
     Dosage: UNK
     Route: 065

REACTIONS (7)
  - Tearfulness [Unknown]
  - Speech disorder [Unknown]
  - Hallucination [Unknown]
  - Mood swings [Unknown]
  - Dizziness [Unknown]
  - Myalgia [Unknown]
  - Hypersomnia [Unknown]
